FAERS Safety Report 8012952-1 (Version None)
Quarter: 2011Q4

REPORT INFORMATION
  Report Type: 
  Country: None (occurrence: None)
  Receive Date: 20111223
  Receipt Date: 20111212
  Transmission Date: 20120403
  Serious: Yes (Hospitalization, Other)
  Sender: FDA-Public Use
  Company Number: 2011P1014338

PATIENT
  Age: 58 Year
  Sex: Male

DRUGS (7)
  1. MIRTAZAPINE [Suspect]
     Indication: DEPRESSION
     Dosage: 50 MG;HS;
  2. FENTANYL [Suspect]
     Indication: BACK PAIN
     Dosage: 75 UG/HR;Q2D;TDER
     Route: 062
  3. CITALOPRAM HYDROBROMIDE [Suspect]
     Indication: DEPRESSION
     Dosage: 40 MG;QD;
  4. OXYCODONE AND ACETAMINOPHEN [Suspect]
     Indication: BACK PAIN
     Dosage: 5/325 MG;BID;PO
     Route: 048
  5. CELECOXIB [Concomitant]
  6. DOXAZOSIN MESYLATE [Concomitant]
  7. ZOLPIDEM EXTENDED EXTENDEDRELEASE [Concomitant]

REACTIONS (7)
  - HYPERTENSION [None]
  - INADEQUATE ANALGESIA [None]
  - SEROTONIN SYNDROME [None]
  - ANXIETY [None]
  - CONFUSIONAL STATE [None]
  - YAWNING [None]
  - INSOMNIA [None]
